FAERS Safety Report 6217273-5 (Version None)
Quarter: 2009Q2

REPORT INFORMATION
  Report Type: 
  Country: None (occurrence: None)
  Receive Date: 20090604
  Receipt Date: 20090604
  Transmission Date: 20091009
  Serious: Yes (Hospitalization)
  Sender: FDA-Public Use
  Company Number: None

PATIENT
  Age: 17 Year
  Sex: Male
  Weight: 54.4316 kg

DRUGS (2)
  1. BUPROPION HCL EXTENDED RELEASE 300 MG WATSON [Suspect]
     Indication: DEPRESSION
     Dosage: 450 MG DAILY PO
     Route: 048
     Dates: start: 20081201, end: 20090529
  2. BUPROPION HCL EXTENDED RELEASE 150 MG GLOBAL [Suspect]

REACTIONS (1)
  - GRAND MAL CONVULSION [None]
